FAERS Safety Report 18223217 (Version 2)
Quarter: 2020Q4

REPORT INFORMATION
  Report Type: Report from Study
  Country: KR (occurrence: KR)
  Receive Date: 20200902
  Receipt Date: 20201026
  Transmission Date: 20210113
  Serious: Yes (Hospitalization)
  Sender: FDA-Public Use
  Company Number: KR-BAYER-2020-137417

PATIENT

DRUGS (1)
  1. BETAFERON [Suspect]
     Active Substance: INTERFERON BETA-1B
     Indication: MULTIPLE SCLEROSIS
     Dosage: UNK UNK, QOD
     Route: 058
     Dates: start: 20191223

REACTIONS (4)
  - Dizziness [Recovered/Resolved]
  - Wrist fracture [Recovered/Resolved]
  - Peripheral swelling [Recovered/Resolved]
  - Fall [None]

NARRATIVE: CASE EVENT DATE: 20200825
